FAERS Safety Report 25558255 (Version 1)
Quarter: 2025Q3

REPORT INFORMATION
  Report Type: Spontaneous
  Country: US (occurrence: US)
  Receive Date: 20250715
  Receipt Date: 20250715
  Transmission Date: 20251020
  Serious: No
  Sender: NOVO NORDISK
  Company Number: US-NOVOPROD-1432378

PATIENT
  Age: 59 Year
  Sex: Female
  Weight: 81.633 kg

DRUGS (1)
  1. OZEMPIC [Suspect]
     Active Substance: SEMAGLUTIDE
     Indication: Type 2 diabetes mellitus
     Dates: start: 202304

REACTIONS (2)
  - Weight loss poor [Unknown]
  - Glycosylated haemoglobin increased [Recovering/Resolving]
